FAERS Safety Report 4664884-4 (Version None)
Quarter: 2005Q2

REPORT INFORMATION
  Report Type: 
  Country: None (occurrence: None)
  Receive Date: 20050517
  Receipt Date: 20050503
  Transmission Date: 20051028
  Serious: Yes (Hospitalization)
  Sender: FDA-Public Use
  Company Number: FR_050506358

PATIENT
  Age: 54 Year
  Sex: Male
  Weight: 63 kg

DRUGS (2)
  1. GEMZAR [Suspect]
     Indication: PANCREATIC CARCINOMA METASTATIC
     Dosage: 1730 MG OTHER
     Dates: start: 20050309, end: 20050309
  2. ELOXATIN [Concomitant]

REACTIONS (2)
  - RASH MACULO-PAPULAR [None]
  - URTICARIA [None]
